FAERS Safety Report 17393351 (Version 2)
Quarter: 2020Q1

REPORT INFORMATION
  Report Type: Spontaneous
  Country: BR (occurrence: BR)
  Receive Date: 20200208
  Receipt Date: 20200307
  Transmission Date: 20200409
  Serious: Yes (Hospitalization, Other)
  Sender: FDA-Public Use
  Company Number: BR-AMGEN-BRASP2012039738

PATIENT
  Age: 62 Year
  Sex: Female
  Weight: 65 kg

DRUGS (8)
  1. SIFROL [Concomitant]
     Active Substance: PRAMIPEXOLE
     Indication: RESTLESS LEGS SYNDROME
     Dosage: 1 MILLIGRAM, BID
  2. ARTROLIVE [Concomitant]
     Active Substance: CHONDROITIN SULFATE (BOVINE)\GLUCOSAMINE SULFATE
     Dosage: UNK
     Dates: end: 2017
  3. ENBREL [Suspect]
     Active Substance: ETANERCEPT
     Indication: ANKYLOSING SPONDYLITIS
     Dosage: 50 MILLIGRAM, QWK
     Route: 058
     Dates: start: 201205, end: 2017
  4. ENBREL [Suspect]
     Active Substance: ETANERCEPT
     Dosage: UNK
     Route: 065
  5. ARTROSIL [KETOPROFEN LYSINE] [Concomitant]
     Dosage: UNK
  6. IBUPROFEN. [Concomitant]
     Active Substance: IBUPROFEN
     Dosage: 320 MILLIGRAM, QD
     Route: 065
  7. LEXOTAN [Concomitant]
     Active Substance: BROMAZEPAM
     Dosage: 3 MILLIGRAM, QD
  8. ADEROGIL D3 [Concomitant]
     Dosage: UNK
     Dates: end: 2017

REACTIONS (19)
  - Spinal cord herniation [Not Recovered/Not Resolved]
  - Decreased immune responsiveness [Recovered/Resolved]
  - Pain in extremity [Not Recovered/Not Resolved]
  - Foot deformity [Not Recovered/Not Resolved]
  - Blood pressure decreased [Unknown]
  - Asthenia [Not Recovered/Not Resolved]
  - Kyphosis [Not Recovered/Not Resolved]
  - Spinal disorder [Unknown]
  - Back pain [Not Recovered/Not Resolved]
  - Angiopathy [Unknown]
  - Sciatica [Not Recovered/Not Resolved]
  - Vision blurred [Unknown]
  - Muscle spasms [Unknown]
  - Pain [Unknown]
  - Gastrointestinal infection [Recovered/Resolved]
  - Dizziness [Unknown]
  - Finger deformity [Not Recovered/Not Resolved]
  - Gait inability [Not Recovered/Not Resolved]
  - Herpes dermatitis [Recovered/Resolved]

NARRATIVE: CASE EVENT DATE: 2012
